FAERS Safety Report 5908990-2 (Version None)
Quarter: 2008Q4

REPORT INFORMATION
  Report Type: 
  Country: None (occurrence: None)
  Receive Date: 20081006
  Receipt Date: 20080922
  Transmission Date: 20090506
  Serious: Yes (Hospitalization)
  Sender: FDA-Public Use
  Company Number: FR-ELI_LILLY_AND_COMPANY-FR200809004603

PATIENT
  Sex: Female

DRUGS (10)
  1. ZYPREXA [Suspect]
     Dosage: 5 MG, DAILY (1/D)
     Route: 048
     Dates: start: 20080319, end: 20080323
  2. NOCTRAN 10 [Concomitant]
     Dosage: 10 MG, DAILY (1/D)
     Route: 048
     Dates: start: 20080314, end: 20080317
  3. OMEPRAZOLE [Concomitant]
     Dosage: 20 MG, EACH EVENING
     Route: 048
  4. BISOPROLOL [Concomitant]
     Dosage: 5 MG, DAILY (1/D)
     Route: 048
  5. BISOPROLOL [Concomitant]
     Dosage: 10 MG, EACH EVENING
     Route: 048
  6. TEGRETOL [Concomitant]
     Dosage: 100 MG, EACH MORNING
     Route: 048
     Dates: start: 20080319, end: 20080321
  7. TEGRETOL [Concomitant]
     Dosage: 200 MG, EACH EVENING
     Route: 048
  8. NOROXIN [Concomitant]
     Dates: start: 20080314, end: 20080317
  9. AMOXICILLIN [Concomitant]
     Indication: URINARY TRACT INFECTION
     Dosage: 1 G, 3/D
     Route: 048
     Dates: start: 20080319, end: 20080321
  10. POLARAMINE [Concomitant]
     Dosage: 4 MG, UNK
     Route: 048

REACTIONS (4)
  - BRONCHOSPASM [None]
  - DERMATITIS ALLERGIC [None]
  - EOSINOPHILIA [None]
  - TOXIC SKIN ERUPTION [None]
